FAERS Safety Report 15260498 (Version 1)
Quarter: 2018Q3

REPORT INFORMATION
  Report Type: Report from Study
  Country: None (occurrence: JP)
  Receive Date: 20180809
  Receipt Date: 20180809
  Transmission Date: 20181010
  Serious: Yes (Disabling, Other)
  Sender: FDA-Public Use
  Company Number: JP-BAUSCH-2012VX005593

PATIENT
  Age: 59 Year
  Sex: Male

DRUGS (13)
  1. LUCENTIS [Suspect]
     Active Substance: RANIBIZUMAB
     Indication: POLYPOIDAL CHOROIDAL VASCULOPATHY
     Dosage: QMO; EVERY MONTH IN THE RIGHT EYE; INTRAVITREAL IN ROUTE
     Route: 031
     Dates: start: 20090728
  2. LUCENTIS [Suspect]
     Active Substance: RANIBIZUMAB
     Dosage: QMO; EVERY MONTH IN THE RIGHT EYE; INTRAVITREAL IN ROUTE
     Route: 031
     Dates: start: 20090825
  3. LUCENTIS [Suspect]
     Active Substance: RANIBIZUMAB
     Dosage: QMO; EVERY MONTH IN THE RIGHT EYE
     Route: 031
     Dates: start: 20090825
  4. LUCENTIS [Suspect]
     Active Substance: RANIBIZUMAB
     Dosage: QMO; EVERY MONTH IN THE RIGHT EYE
     Route: 031
     Dates: start: 20101209
  5. LUCENTIS [Suspect]
     Active Substance: RANIBIZUMAB
     Dosage: QMO; EVERY MONTH IN THE RIGHT EYE
     Route: 031
     Dates: start: 20110201
  6. LUCENTIS [Suspect]
     Active Substance: RANIBIZUMAB
     Dosage: QMO; EVERY MONTH IN THE RIGHT EYE
     Route: 031
     Dates: start: 20090929
  7. VISUDYNE [Suspect]
     Active Substance: VERTEPORFIN
     Indication: POLYPOIDAL CHOROIDAL VASCULOPATHY
     Route: 041
     Dates: start: 200907, end: 200907
  8. VEGAMOX [Concomitant]
     Active Substance: MOXIFLOXACIN HYDROCHLORIDE
     Indication: PRODUCT USED FOR UNKNOWN INDICATION
     Route: 065
     Dates: start: 200907, end: 201102
  9. LUCENTIS [Suspect]
     Active Substance: RANIBIZUMAB
     Dosage: QMO; EVERY MONTH IN THE RIGHT EYE; INTRAVITREAL IN ROUTE
     Route: 031
     Dates: start: 20090929
  10. LUCENTIS [Suspect]
     Active Substance: RANIBIZUMAB
     Dosage: QMO; EVERY MONTH IN THE RIGHT EYE; INTRAVITREAL IN ROUTE
     Route: 031
     Dates: start: 20110201
  11. VISUDYNE [Suspect]
     Active Substance: VERTEPORFIN
     Route: 041
     Dates: start: 20090803, end: 20090803
  12. LUCENTIS [Suspect]
     Active Substance: RANIBIZUMAB
     Dosage: QMO; EVERY MONTH IN THE RIGHT EYE
     Route: 031
     Dates: start: 20090728
  13. LUCENTIS [Suspect]
     Active Substance: RANIBIZUMAB
     Dosage: QMO; EVERY MONTH IN THE RIGHT EYE; INTRAVITREAL IN ROUTE
     Route: 031
     Dates: start: 20101209

REACTIONS (4)
  - Disease recurrence [Recovering/Resolving]
  - Visual acuity reduced [Not Recovered/Not Resolved]
  - Retinal haemorrhage [Recovering/Resolving]
  - Detachment of retinal pigment epithelium [Recovering/Resolving]

NARRATIVE: CASE EVENT DATE: 20101207
